FAERS Safety Report 16710887 (Version 1)
Quarter: 2019Q3

REPORT INFORMATION
  Report Type: Spontaneous
  Country: FR (occurrence: FR)
  Receive Date: 20190816
  Receipt Date: 20190816
  Transmission Date: 20191004
  Serious: Yes (Other)
  Sender: FDA-Public Use
  Company Number: FR-PFIZER INC-2019346742

PATIENT
  Sex: Female
  Weight: 76 kg

DRUGS (2)
  1. EZETROL [Suspect]
     Active Substance: EZETIMIBE
     Indication: ARTERITIS
     Dosage: 1 DF, 1X/DAY
     Route: 048
     Dates: start: 201704, end: 20170523
  2. ATORVASTATIN CALCIUM. [Suspect]
     Active Substance: ATORVASTATIN CALCIUM
     Indication: ARTERITIS
     Dosage: 1 DF, 1X/DAY
     Route: 048
     Dates: start: 200704, end: 201704

REACTIONS (6)
  - Weight increased [Recovering/Resolving]
  - Pain in extremity [Recovered/Resolved]
  - Off label use [Unknown]
  - Blood creatine phosphokinase increased [Recovering/Resolving]
  - Malaise [Recovered/Resolved]
  - Product use in unapproved indication [Unknown]

NARRATIVE: CASE EVENT DATE: 200704
